FAERS Safety Report 14608664 (Version 1)
Quarter: 2018Q1

REPORT INFORMATION
  Report Type: Spontaneous
  Country: PT (occurrence: PT)
  Receive Date: 20180307
  Receipt Date: 20180307
  Transmission Date: 20180509
  Serious: Yes (Other)
  Sender: FDA-Public Use
  Company Number: PT-TEVA-2018-PT-864206

PATIENT
  Sex: Female

DRUGS (1)
  1. LOSARTAN + HIDROCLOROTIAZIDA RATIOPHARM [Suspect]
     Active Substance: HYDROCHLOROTHIAZIDE\LOSARTAN POTASSIUM
     Route: 048

REACTIONS (3)
  - Rash macular [Recovered/Resolved]
  - Rash generalised [Recovered/Resolved]
  - Hypersensitivity [Recovered/Resolved]
